FAERS Safety Report 9956521 (Version 1)
Quarter: 2014Q1

REPORT INFORMATION
  Report Type: Report from Study
  Country: US (occurrence: US)
  Receive Date: 20140304
  Receipt Date: 20140304
  Transmission Date: 20141002
  Serious: Yes (Hospitalization)
  Sender: FDA-Public Use
  Company Number: US-ABBVIE-13P-163-1100637-00

PATIENT
  Sex: Female
  Weight: 68.1 kg

DRUGS (9)
  1. HUMIRA [Suspect]
     Indication: MYALGIA
     Route: 058
     Dates: start: 201201, end: 201205
  2. HUMIRA [Suspect]
     Route: 058
     Dates: start: 201211
  3. SYNTHROID [Concomitant]
     Indication: HYPOTHYROIDISM
  4. ADVAIR [Concomitant]
     Indication: ASTHMA
     Dosage: (100/50) 2 PUFFS DAILY
  5. ALBUTEROL [Concomitant]
     Indication: ASTHMA
  6. CALCIUM [Concomitant]
     Indication: VITAMIN SUPPLEMENTATION
  7. VITAMIN B COMPLEX [Concomitant]
     Indication: VITAMIN SUPPLEMENTATION
  8. VITAMIN D NOS [Concomitant]
     Indication: VITAMIN SUPPLEMENTATION
  9. PREDNISONE [Concomitant]
     Indication: MYALGIA

REACTIONS (4)
  - Atypical pneumonia [Recovered/Resolved]
  - Rash papular [Recovering/Resolving]
  - Rash pruritic [Recovering/Resolving]
  - Off label use [Unknown]
